FAERS Safety Report 5993169-9 (Version None)
Quarter: 2008Q4

REPORT INFORMATION
  Report Type: 
  Country: None (occurrence: None)
  Receive Date: 20081210
  Receipt Date: 20081210
  Transmission Date: 20090506
  Serious: No
  Sender: FDA-Public Use
  Company Number: None

PATIENT
  Age: 68 Year
  Sex: Female

DRUGS (1)
  1. CELEBREX [Suspect]
     Indication: OSTEOARTHRITIS
     Dosage: 100MG DAILY PO
     Route: 048
     Dates: start: 20080118, end: 20080317

REACTIONS (1)
  - POSTMENOPAUSAL HAEMORRHAGE [None]
